FAERS Safety Report 15586025 (Version 2)
Quarter: 2018Q4

REPORT INFORMATION
  Report Type: Spontaneous
  Country: US (occurrence: US)
  Receive Date: 20181105
  Receipt Date: 20181120
  Transmission Date: 20190205
  Serious: Yes (Other)
  Sender: FDA-Public Use
  Company Number: US-PFIZER INC-2018449161

PATIENT
  Age: 52 Year
  Sex: Female

DRUGS (2)
  1. NEURONTIN [Suspect]
     Active Substance: GABAPENTIN
     Dosage: 1600 MG, DAILY
  2. NEURONTIN [Suspect]
     Active Substance: GABAPENTIN
     Indication: MIGRAINE
     Dosage: 1200 MG, DAILY
     Dates: start: 2018

REACTIONS (7)
  - Malaise [Unknown]
  - Decreased appetite [Unknown]
  - Condition aggravated [Not Recovered/Not Resolved]
  - Pancreatic mass [Unknown]
  - Product use in unapproved indication [Unknown]
  - Weight decreased [Unknown]
  - Abdominal pain upper [Not Recovered/Not Resolved]

NARRATIVE: CASE EVENT DATE: 2018
